FAERS Safety Report 5970891-1 (Version None)
Quarter: 2008Q4

REPORT INFORMATION
  Report Type: 
  Country: None (occurrence: None)
  Receive Date: 20081128
  Receipt Date: 20081117
  Transmission Date: 20090506
  Serious: Yes (Hospitalization, Other)
  Sender: FDA-Public Use
  Company Number: PHHY2008FR29051

PATIENT
  Sex: Male

DRUGS (11)
  1. ESIDRIX [Suspect]
     Indication: CARDIAC FAILURE
     Dosage: 25 MG, QD
     Route: 048
     Dates: start: 20081008, end: 20081014
  2. ATACAND [Interacting]
     Dosage: 6 MG, QD
     Route: 048
     Dates: start: 20070101
  3. LASIX [Interacting]
     Indication: CARDIAC FAILURE
     Dosage: 250 MG, QD
     Route: 048
     Dates: start: 20081008, end: 20081014
  4. ALDACTONE [Interacting]
     Dosage: 100 MG, QD
     Route: 048
     Dates: start: 20081008, end: 20081015
  5. DIAMOX                                  /CAN/ [Interacting]
     Dosage: 125 MG, QD
     Dates: start: 20081008, end: 20081015
  6. DIAMOX                                  /CAN/ [Interacting]
     Dosage: 125 MG, QD
     Route: 048
     Dates: start: 20081018
  7. PREVISCAN [Concomitant]
     Dosage: 10 MG, QD
     Route: 048
     Dates: start: 20070101
  8. CORDARONE [Concomitant]
     Indication: ATRIAL FIBRILLATION
     Dosage: 200 MG, QD
     Route: 048
     Dates: start: 20070101, end: 20081020
  9. GAVISCON                                /GFR/ [Concomitant]
     Dosage: 1 DF, TID
     Route: 048
     Dates: start: 20081008
  10. KALEORID [Concomitant]
     Dosage: 600 MG, TID
     Route: 048
     Dates: start: 20081008, end: 20081014
  11. LANTUS [Concomitant]
     Indication: DIABETES MELLITUS
     Dosage: 22 IU, QD
     Route: 058

REACTIONS (13)
  - ABDOMINAL PAIN UPPER [None]
  - ASTHENIA [None]
  - BLOOD PRESSURE DECREASED [None]
  - CREATININE RENAL CLEARANCE DECREASED [None]
  - DEHYDRATION [None]
  - DRUG INTERACTION [None]
  - GENERAL PHYSICAL CONDITION ABNORMAL [None]
  - HEART SOUNDS ABNORMAL [None]
  - HYPONATRAEMIA [None]
  - OLIGURIA [None]
  - PRODUCTIVE COUGH [None]
  - RENAL FAILURE ACUTE [None]
  - SKIN ULCER [None]
